FAERS Safety Report 17014070 (Version 2)
Quarter: 2019Q4

REPORT INFORMATION
  Report Type: Report from Study
  Country: CA (occurrence: CA)
  Receive Date: 20191111
  Receipt Date: 20191121
  Transmission Date: 20200122
  Serious: Yes (Other)
  Sender: FDA-Public Use
  Company Number: CA-ROCHE-2459823

PATIENT
  Sex: Female
  Weight: 88 kg

DRUGS (21)
  1. DULOXETINE. [Concomitant]
     Active Substance: DULOXETINE
     Dosage: ONGOING
     Route: 048
  2. LOPERAMIDE [Concomitant]
     Active Substance: LOPERAMIDE
     Route: 048
  3. LYRICA [Concomitant]
     Active Substance: PREGABALIN
  4. INSULIN [Concomitant]
     Active Substance: INSULIN NOS
  5. ACTEMRA [Suspect]
     Active Substance: TOCILIZUMAB
     Dosage: ONGOING
     Route: 042
     Dates: start: 2018
  6. PROPRANOLOL [Concomitant]
     Active Substance: PROPRANOLOL HYDROCHLORIDE
     Dosage: ONGOING
     Route: 048
  7. ATORVASTATIN [Concomitant]
     Active Substance: ATORVASTATIN
     Dosage: ONGOING
     Route: 048
  8. HYDROCHLOROTHIAZIDE. [Concomitant]
     Active Substance: HYDROCHLOROTHIAZIDE
  9. HUMULIN N [Concomitant]
     Active Substance: INSULIN HUMAN
  10. ACUVAIL [Concomitant]
     Active Substance: KETOROLAC TROMETHAMINE
  11. ATORVASTIN [Concomitant]
     Active Substance: ATORVASTATIN
  12. COENZYME Q10 [Concomitant]
     Active Substance: UBIDECARENONE
  13. CALCIUM VITAMIN D3 [Concomitant]
     Dosage: ONGOING
     Route: 048
  14. CALCIUM [Concomitant]
     Active Substance: CALCIUM
  15. ACTEMRA [Suspect]
     Active Substance: TOCILIZUMAB
     Indication: RHEUMATOID ARTHRITIS
     Route: 042
     Dates: start: 20130718
  16. METFORMIN [Concomitant]
     Active Substance: METFORMIN HYDROCHLORIDE
     Dosage: ONE TABLET IN THE MORNING, 2 TABS AT BEDTIME
     Route: 065
  17. METHOTREXATE. [Concomitant]
     Active Substance: METHOTREXATE
  18. PREDNISONE. [Concomitant]
     Active Substance: PREDNISONE
  19. VIGAMOX [Concomitant]
     Active Substance: MOXIFLOXACIN HYDROCHLORIDE
  20. HUMULIN R [Concomitant]
     Active Substance: INSULIN HUMAN
  21. FOLIC ACID. [Concomitant]
     Active Substance: FOLIC ACID

REACTIONS (2)
  - Cataract [Unknown]
  - Cataract [Recovering/Resolving]
